FAERS Safety Report 25067905 (Version 1)
Quarter: 2025Q1

REPORT INFORMATION
  Report Type: Spontaneous
  Country: US (occurrence: US)
  Receive Date: 20250312
  Receipt Date: 20250312
  Transmission Date: 20250408
  Serious: Yes (Hospitalization)
  Sender: CSL BEHRING
  Company Number: US-BEH-2025198542

PATIENT
  Age: 36 Year
  Sex: Female

DRUGS (21)
  1. HIZENTRA [Suspect]
     Active Substance: HUMAN IMMUNOGLOBULIN G
     Indication: Cystic fibrosis
     Dosage: 4 G, BIW
     Route: 058
     Dates: start: 20241015
  2. ALBUTEROL SULFATE [Concomitant]
     Active Substance: ALBUTEROL SULFATE
  3. AMITRIPTYLINE [Concomitant]
     Active Substance: AMITRIPTYLINE
  4. ATOVAQUONE [Concomitant]
     Active Substance: ATOVAQUONE
  5. AZITHROMYCIN [Concomitant]
     Active Substance: AZITHROMYCIN
  6. BACLOFEN [Concomitant]
     Active Substance: BACLOFEN
  7. CAYSTON [Concomitant]
     Active Substance: AZTREONAM
  8. DAPSONE [Concomitant]
     Active Substance: DAPSONE
  9. EPINEPHRINE [Concomitant]
     Active Substance: EPINEPHRINE
  10. MYCOPHENOLIC ACID [Concomitant]
     Active Substance: MYCOPHENOLIC ACID
  11. MYCOPHENOLIC ACID [Concomitant]
     Active Substance: MYCOPHENOLIC ACID
  12. PANCREAZE [Concomitant]
     Active Substance: PANCRELIPASE AMYLASE\PANCRELIPASE LIPASE\PANCRELIPASE PROTEASE
  13. PREDNISONE [Concomitant]
     Active Substance: PREDNISONE
  14. RIZATRIPTAN [Concomitant]
     Active Substance: RIZATRIPTAN
  15. TACROLIMUS [Concomitant]
     Active Substance: TACROLIMUS
  16. TOBI [Concomitant]
     Active Substance: TOBRAMYCIN
  17. TOBRAMYCIN [Concomitant]
     Active Substance: TOBRAMYCIN
  18. TRIKAFTA [Concomitant]
     Active Substance: ELEXACAFTOR\IVACAFTOR\TEZACAFTOR
  19. URSODIOL [Concomitant]
     Active Substance: URSODIOL
  20. VALACYCLOVIR [Concomitant]
     Active Substance: VALACYCLOVIR HYDROCHLORIDE
  21. VORICONAZOLE [Concomitant]
     Active Substance: VORICONAZOLE

REACTIONS (2)
  - Dyspnoea [Not Recovered/Not Resolved]
  - Off label use [Unknown]

NARRATIVE: CASE EVENT DATE: 20250222
